FAERS Safety Report 6203152-6 (Version None)
Quarter: 2009Q2

REPORT INFORMATION
  Report Type: 
  Country: None (occurrence: None)
  Receive Date: 20090526
  Receipt Date: 20090526
  Transmission Date: 20091009
  Serious: Yes (Hospitalization)
  Sender: FDA-Public Use
  Company Number: None

PATIENT
  Sex: Female
  Weight: 71 kg

DRUGS (13)
  1. OSMOPREP [Suspect]
     Indication: BOWEL PREPARATION
     Dosage: PER MANUFACTURER RECOMMENDATIONS
     Dates: start: 20090519
  2. OSMOPREP [Suspect]
     Indication: COLONOSCOPY
     Dosage: PER MANUFACTURER RECOMMENDATIONS
     Dates: start: 20090519
  3. NEXIUM [Concomitant]
  4. DARVOCET-N 100 [Concomitant]
  5. DIMENHYDRINATE [Concomitant]
  6. ALLEGRA [Concomitant]
  7. GEMFIBROZIL [Concomitant]
  8. LEVOTHYROXINE [Concomitant]
  9. PLAVIX [Concomitant]
  10. LISINOPRIL [Concomitant]
  11. HYDROCHLOROTHIAZIDE [Concomitant]
  12. TUSSIONEX [Concomitant]
  13. PROVENTIL-HFA [Concomitant]

REACTIONS (2)
  - HYPOPHOSPHATAEMIA [None]
  - RENAL FAILURE ACUTE [None]
